FAERS Safety Report 21708107 (Version 5)
Quarter: 2023Q2

REPORT INFORMATION
  Report Type: Report from Study
  Country: MX (occurrence: MX)
  Receive Date: 20221209
  Receipt Date: 20230516
  Transmission Date: 20230721
  Serious: No
  Sender: FDA-Public Use
  Company Number: MX-ALLERGAN-2240596US

PATIENT
  Age: 16 Year
  Sex: Female
  Weight: 66.1 kg

DRUGS (5)
  1. CARIPRAZINE HYDROCHLORIDE [Suspect]
     Active Substance: CARIPRAZINE HYDROCHLORIDE
     Indication: Schizophrenia
     Dosage: UNK
     Dates: start: 20221013
  2. CARIPRAZINE HYDROCHLORIDE [Suspect]
     Active Substance: CARIPRAZINE HYDROCHLORIDE
     Indication: Schizophrenia
     Dosage: UNK
     Dates: start: 20221013
  3. PLACEBO [Suspect]
     Active Substance: UNSPECIFIED INGREDIENT
     Indication: Schizophrenia
     Dosage: UNK
     Dates: start: 20221013
  4. OLOPATADINE [Concomitant]
     Active Substance: OLOPATADINE
     Indication: Eye pruritus
     Dosage: 7 GTT PER EYE (1 IN 0.5 D)
     Route: 047
     Dates: start: 20230323
  5. SODIUM HYALURONATE [Concomitant]
     Active Substance: HYALURONATE SODIUM
     Indication: Eye irritation
     Dosage: 2 GTT PER EYE (1 IN 0.25 D)
     Route: 047
     Dates: start: 20230323

REACTIONS (1)
  - Accommodation disorder [Recovered/Resolved]

NARRATIVE: CASE EVENT DATE: 20221021
